FAERS Safety Report 23072346 (Version 1)
Quarter: 2023Q4

REPORT INFORMATION
  Report Type: Spontaneous
  Country: US (occurrence: None)
  Receive Date: 20231017
  Receipt Date: 20231017
  Transmission Date: 20240110
  Serious: No
  Sender: FDA-Public Use
  Company Number: 2023A233467

PATIENT
  Sex: Female

DRUGS (1)
  1. BREZTRI [Suspect]
     Active Substance: BUDESONIDE\FORMOTEROL\GLYCOPYRROLATE
     Dosage: UNKNOWN
     Route: 055

REACTIONS (4)
  - Oropharyngeal pain [Not Recovered/Not Resolved]
  - Product dose omission issue [Unknown]
  - Product cleaning inadequate [Unknown]
  - Product use issue [Unknown]
